FAERS Safety Report 7330263-4 (Version None)
Quarter: 2011Q1

REPORT INFORMATION
  Report Type: 
  Country: None (occurrence: None)
  Receive Date: 20110304
  Receipt Date: 20110217
  Transmission Date: 20110831
  Serious: Yes (Death, Hospitalization)
  Sender: FDA-Public Use
  Company Number: DE-AMGEN-DEUCT2011007259

PATIENT
  Age: 77 Year
  Sex: Male

DRUGS (5)
  1. CALCIMAGON-D3 [Concomitant]
     Dosage: UNK
  2. GLIBEN                             /00145301/ [Concomitant]
     Dosage: 1.25 MG, 3X/DAY
  3. PREDNISOLONE [Concomitant]
     Dosage: 5 MG, UNK
  4. ETANERCEPT [Suspect]
     Indication: PRODUCT USED FOR UNKNOWN INDICATION
     Dosage: 50 MG, UNK
     Route: 065
     Dates: start: 20100101, end: 20100405
  5. IBUPROFEN [Concomitant]
     Dosage: 600 MG, 2X/DAY

REACTIONS (8)
  - DEATH [None]
  - COLITIS ISCHAEMIC [None]
  - CLOSTRIDIUM TEST POSITIVE [None]
  - SKIN ULCER [None]
  - ACUTE MYOCARDIAL INFARCTION [None]
  - PSEUDOMEMBRANOUS COLITIS [None]
  - ORAL CANDIDIASIS [None]
  - DELIRIUM [None]
